FAERS Safety Report 5715230-6 (Version None)
Quarter: 2008Q2

REPORT INFORMATION
  Report Type: 
  Country: None (occurrence: None)
  Receive Date: 20080422
  Receipt Date: 20080410
  Transmission Date: 20081010
  Serious: Yes (Hospitalization)
  Sender: FDA-Public Use
  Company Number: 78638

PATIENT
  Age: 13 Month
  Sex: Female

DRUGS (4)
  1. NAPROXEN SODIUM [Suspect]
     Indication: JUVENILE ARTHRITIS
     Dosage: ORAL
     Route: 048
  2. METHOTREXATE [Suspect]
     Indication: JUVENILE ARTHRITIS
     Dosage: 5 MG TO 5.5 MG/WEEK
  3. ORAL CORTICOSTEROIDS [Concomitant]
  4. FOLIC ACID [Concomitant]

REACTIONS (7)
  - HEPATITIS [None]
  - HEPATOMEGALY [None]
  - HYPERAMMONAEMIA [None]
  - HYPOGLYCAEMIA [None]
  - LETHARGY [None]
  - RESPIRATORY DISORDER [None]
  - VOMITING [None]
